FAERS Safety Report 8912040 (Version 1)
Quarter: 2012Q4

REPORT INFORMATION
  Report Type: 
  Country: FR (occurrence: FR)
  Receive Date: 20121116
  Receipt Date: 20121116
  Transmission Date: 20130627
  Serious: Yes (Life-Threatening, Hospitalization, Other)
  Sender: FDA-Public Use
  Company Number: FR-ASTRAZENECA-2012SE85816

PATIENT
  Age: 62 Year
  Sex: Male

DRUGS (2)
  1. XEROQUEL [Suspect]
     Indication: SCHIZOPHRENIA
     Dosage: Intake of 30 tablets (once/single administration)
     Route: 048
     Dates: start: 20121102, end: 20121102
  2. NORSET [Suspect]
     Route: 065

REACTIONS (3)
  - Overdose [Unknown]
  - Toxicity to various agents [Recovered/Resolved]
  - Neuroleptic malignant syndrome [Recovered/Resolved]
